FAERS Safety Report 24793109 (Version 2)
Quarter: 2025Q3

REPORT INFORMATION
  Report Type: Spontaneous
  Country: US (occurrence: US)
  Receive Date: 20241231
  Receipt Date: 20250701
  Transmission Date: 20251021
  Serious: No
  Sender: ROCHE
  Company Number: US-ROCHE-10000169542

PATIENT
  Sex: Female

DRUGS (4)
  1. PERJETA [Suspect]
     Active Substance: PERTUZUMAB
     Indication: Breast cancer female
     Dosage: 420 14 ML
     Route: 042
  2. PERJETA [Suspect]
     Active Substance: PERTUZUMAB
     Dosage: 420 14 ML
     Route: 042
  3. TAMOXIFEN CI [Concomitant]
  4. ANASTROZOLE [Concomitant]
     Active Substance: ANASTROZOLE

REACTIONS (6)
  - Dry eye [Not Recovered/Not Resolved]
  - Eye pruritus [Not Recovered/Not Resolved]
  - Eye irritation [Not Recovered/Not Resolved]
  - Rash [Not Recovered/Not Resolved]
  - Back pain [Not Recovered/Not Resolved]
  - Arthritis [Not Recovered/Not Resolved]
